FAERS Safety Report 13120530 (Version 1)
Quarter: 2017Q1

REPORT INFORMATION
  Report Type: Spontaneous
  Country: US (occurrence: US)
  Receive Date: 20170117
  Receipt Date: 20170117
  Transmission Date: 20170428
  Serious: No
  Sender: FDA-Public Use
  Company Number: US-TORRENT-00001314

PATIENT
  Sex: Female

DRUGS (4)
  1. IRON TABLETS [Concomitant]
  2. ZOLPIDEM TARTRATE TABLET [Suspect]
     Active Substance: ZOLPIDEM TARTRATE
     Indication: INSOMNIA
     Dosage: 1 NIGHTLY
  3. VITAMIN D3 [Concomitant]
     Active Substance: CHOLECALCIFEROL
  4. MAGNESIUM TABLETS [Concomitant]

REACTIONS (1)
  - Tremor [Unknown]
